FAERS Safety Report 6558055-4 (Version None)
Quarter: 2010Q1

REPORT INFORMATION
  Report Type: 
  Country: None (occurrence: None)
  Receive Date: 20100129
  Receipt Date: 20100119
  Transmission Date: 20100710
  Serious: Yes (Life-Threatening, Other)
  Sender: FDA-Public Use
  Company Number: CH-AMGEN-KDL386938

PATIENT
  Sex: Female

DRUGS (7)
  1. NEULASTA [Suspect]
     Indication: CHEMOTHERAPY
     Route: 058
     Dates: start: 20100114
  2. RITUXIMAB [Concomitant]
     Route: 042
     Dates: start: 20100113
  3. CYCLOPHOSPHAMIDE [Concomitant]
     Route: 042
     Dates: start: 20100113
  4. DOXORUBICIN HCL [Concomitant]
     Dates: start: 20100113
  5. VINCRISTINE [Concomitant]
     Route: 042
     Dates: start: 20100113
  6. PREDNISONE [Concomitant]
     Route: 048
     Dates: start: 20100113, end: 20100117
  7. UNSPECIFIED ANTINEOPLASTIC AGENT [Concomitant]
     Route: 042
     Dates: start: 20100113

REACTIONS (2)
  - LEUKOPENIA [None]
  - NEUTROPENIA [None]
